FAERS Safety Report 9871227 (Version 3)
Quarter: 2015Q2

REPORT INFORMATION
  Report Type: Spontaneous
  Country: US (occurrence: US)
  Receive Date: 20140205
  Receipt Date: 20150413
  Transmission Date: 20150821
  Serious: Yes (Hospitalization)
  Sender: FDA-Public Use
  Company Number: US-BAYER-2014-014381

PATIENT
  Age: 20 Year
  Sex: Female
  Weight: 151.93 kg

DRUGS (6)
  1. AZITHROMYCIN [Concomitant]
     Active Substance: AZITHROMYCIN ANHYDROUS
  2. IRON [Concomitant]
     Active Substance: IRON
  3. AMPICILLIN [Concomitant]
     Active Substance: AMPICILLIN
  4. MIRENA [Suspect]
     Active Substance: LEVONORGESTREL
     Indication: CONTRACEPTION
     Dosage: 20 MCG/24HR, CONT
     Route: 015
     Dates: start: 20100116, end: 20100315
  5. MEDROXYPROGESTERONE ACETATE. [Concomitant]
     Active Substance: MEDROXYPROGESTERONE ACETATE
  6. MICONAZOLE [Concomitant]
     Active Substance: MICONAZOLE

REACTIONS (14)
  - Abdominal pain lower [None]
  - Injury [None]
  - Uterine perforation [None]
  - Abdominal pain [None]
  - Emotional distress [None]
  - Discomfort [None]
  - Anxiety [None]
  - Depressed mood [None]
  - Internal injury [None]
  - Depression [None]
  - Fear [None]
  - Device dislocation [None]
  - Medical device complication [None]
  - Uterine scar [None]

NARRATIVE: CASE EVENT DATE: 201001
